FAERS Safety Report 11877575 (Version 1)
Quarter: 2015Q4

REPORT INFORMATION
  Report Type: Spontaneous
  Country: US (occurrence: US)
  Receive Date: 20151230
  Receipt Date: 20151230
  Transmission Date: 20160305
  Serious: No
  Sender: FDA-Public Use
  Company Number: US-BRISTOL-MYERS SQUIBB COMPANY-BMS-2015-091846

PATIENT
  Age: 75 Year
  Sex: Male

DRUGS (1)
  1. ABILIFY [Suspect]
     Active Substance: ARIPIPRAZOLE
     Indication: DEPRESSION
     Dosage: 2 MG, QD
     Route: 048
     Dates: end: 201508

REACTIONS (3)
  - Off label use [Unknown]
  - Dyspnoea [Unknown]
  - Muscle twitching [Unknown]
